FAERS Safety Report 22640067 (Version 2)
Quarter: 2023Q2

REPORT INFORMATION
  Report Type: Report from Study
  Country: US (occurrence: US)
  Receive Date: 20230626
  Receipt Date: 20230626
  Transmission Date: 20230721
  Serious: No
  Sender: FDA-Public Use
  Company Number: US-002147023-NVSC2023US141719

PATIENT

DRUGS (1)
  1. KESIMPTA [Suspect]
     Active Substance: OFATUMUMAB
     Indication: Relapsing multiple sclerosis
     Dosage: UNK, QW
     Route: 058

REACTIONS (7)
  - Influenza like illness [Unknown]
  - Pain [Unknown]
  - Pyrexia [Unknown]
  - Feeling cold [Unknown]
  - Nasopharyngitis [Unknown]
  - Fatigue [Unknown]
  - Productive cough [Unknown]
